FAERS Safety Report 14044934 (Version 1)
Quarter: 2017Q4

REPORT INFORMATION
  Report Type: Spontaneous
  Country: AU (occurrence: AU)
  Receive Date: 20171005
  Receipt Date: 20171005
  Transmission Date: 20180321
  Serious: Yes (Death, Other)
  Sender: FDA-Public Use
  Company Number: AU-ASTRAZENECA-2017SE98491

PATIENT
  Age: 36 Year
  Sex: Female

DRUGS (2)
  1. PALBOCICLIB [Suspect]
     Active Substance: PALBOCICLIB
     Indication: BREAST CANCER FEMALE
     Dates: start: 201405, end: 201409
  2. FULVESTRANT. [Suspect]
     Active Substance: FULVESTRANT
     Indication: BREAST CANCER FEMALE
     Route: 030
     Dates: start: 201405, end: 201409

REACTIONS (4)
  - General physical health deterioration [Unknown]
  - Liver function test abnormal [Unknown]
  - Off label use [Unknown]
  - Neutropenia [Unknown]
